FAERS Safety Report 15160134 (Version 1)
Quarter: 2018Q3

REPORT INFORMATION
  Report Type: Spontaneous
  Country: US (occurrence: US)
  Receive Date: 20180718
  Receipt Date: 20180718
  Transmission Date: 20181010
  Serious: No
  Sender: FDA-Public Use
  Company Number: US-JNJFOC-20180700375

PATIENT
  Age: 26 Year
  Sex: Female
  Weight: 56.7 kg

DRUGS (9)
  1. BENADRYL [Suspect]
     Active Substance: DIPHENHYDRAMINE HYDROCHLORIDE
     Indication: APPLICATION SITE PRURITUS
     Route: 065
     Dates: start: 20180628
  2. MOTRIN [Suspect]
     Active Substance: IBUPROFEN
     Indication: HYPERSENSITIVITY
     Route: 065
     Dates: start: 20180628
  3. BENADRYL [Suspect]
     Active Substance: DIPHENHYDRAMINE HYDROCHLORIDE
     Indication: APPLICATION SITE SWELLING
     Route: 065
     Dates: start: 20180628
  4. MOTRIN [Suspect]
     Active Substance: IBUPROFEN
     Indication: APPLICATION SITE PRURITUS
     Route: 065
     Dates: start: 20180628
  5. MOTRIN [Suspect]
     Active Substance: IBUPROFEN
     Indication: APPLICATION SITE SWELLING
     Route: 065
     Dates: start: 20180628
  6. NEUTROGENA HEALTHY SKIN ANTI?WRINKLE CREAM [Concomitant]
     Indication: PRODUCT USED FOR UNKNOWN INDICATION
     Route: 061
  7. BENADRYL [Suspect]
     Active Substance: DIPHENHYDRAMINE HYDROCHLORIDE
     Indication: HYPERSENSITIVITY
     Route: 065
     Dates: start: 20180628
  8. BENADRYL [Suspect]
     Active Substance: DIPHENHYDRAMINE HYDROCHLORIDE
     Indication: APPLICATION SITE URTICARIA
     Route: 065
     Dates: start: 20180628
  9. MOTRIN [Suspect]
     Active Substance: IBUPROFEN
     Indication: APPLICATION SITE URTICARIA
     Route: 065
     Dates: start: 20180628

REACTIONS (1)
  - Product use in unapproved indication [Unknown]
